FAERS Safety Report 8370094-X (Version None)
Quarter: 2012Q1

REPORT INFORMATION
  Report Type: 
  Country: None (occurrence: None)
  Receive Date: 20120323
  Receipt Date: 20111222
  Transmission Date: 20120608
  Serious: Yes (Other)
  Sender: FDA-Public Use
  Company Number: 163-21880-11113178

PATIENT
  Age: 72 Year
  Sex: Male

DRUGS (2)
  1. REVLIMID [Suspect]
     Indication: MULTIPLE MYELOMA
     Dosage: 25 MG, DAILY FOR 21 DAYS EVERY 28, PO; 25 MG, DAILY FOR 21 DAYS EVERY 28, PO
     Route: 048
     Dates: start: 20110408, end: 20111110
  2. REVLIMID [Suspect]
     Indication: MULTIPLE MYELOMA
     Dosage: 25 MG, DAILY FOR 21 DAYS EVERY 28, PO; 25 MG, DAILY FOR 21 DAYS EVERY 28, PO
     Route: 048
     Dates: start: 20111122

REACTIONS (10)
  - INFECTION [None]
  - DIZZINESS [None]
  - DEHYDRATION [None]
  - SYNCOPE [None]
  - PERIODONTAL INFECTION [None]
  - MALAISE [None]
  - ANAEMIA [None]
  - ASTHENIA [None]
  - HYPOTENSION [None]
  - DECREASED APPETITE [None]
